FAERS Safety Report 24263799 (Version 2)
Quarter: 2024Q3

REPORT INFORMATION
  Report Type: Report from Study
  Country: CO (occurrence: CO)
  Receive Date: 20240829
  Receipt Date: 20240903
  Transmission Date: 20241016
  Serious: Yes (Hospitalization, Other)
  Sender: UCB
  Company Number: CO-UCBSA-2024039850

PATIENT
  Sex: Male

DRUGS (2)
  1. LACOSAMIDE [Suspect]
     Active Substance: LACOSAMIDE
     Indication: Epilepsy
     Dosage: 7 MILLILITER, 2X/DAY (BID)
     Route: 048
     Dates: start: 20240427, end: 20240629
  2. VALCOTE [VALPROATE SODIUM] [Concomitant]
     Indication: Epilepsy
     Dosage: UNK
     Dates: start: 2024

REACTIONS (4)
  - Seizure [Recovered/Resolved]
  - Change in seizure presentation [Recovered/Resolved]
  - Insomnia [Recovered/Resolved]
  - Drug ineffective [Unknown]

NARRATIVE: CASE EVENT DATE: 20240101
